FAERS Safety Report 4319260-0 (Version None)
Quarter: 2004Q1

REPORT INFORMATION
  Report Type: 
  Country: None (occurrence: None)
  Receive Date: 20040318
  Receipt Date: 20040318
  Transmission Date: 20041129
  Serious: Yes (Other)
  Sender: FDA-Public Use
  Company Number: None

PATIENT
  Age: 12 Year
  Sex: Female
  Weight: 40.8237 kg

DRUGS (1)
  1. TRIAMCINOLONE ACETONIDE [Suspect]
     Indication: PITYRIASIS ROSEA
     Dosage: WHERE RASHIS 2 X DAY TOPICAL
     Route: 061
     Dates: start: 20040308, end: 20040311

REACTIONS (1)
  - ENURESIS [None]
